FAERS Safety Report 6434928-8 (Version None)
Quarter: 2009Q4

REPORT INFORMATION
  Report Type: 
  Country: None (occurrence: None)
  Receive Date: 20091109
  Receipt Date: 20091109
  Transmission Date: 20100525
  Serious: No
  Sender: FDA-Public Use
  Company Number: None

PATIENT
  Sex: Female

DRUGS (1)
  1. ISOMETHAHEPTENE, DICHLOROPHENAZONE AND APAP CAPSULES [Suspect]
     Indication: MIGRAINE
     Dosage: 65MG/100MG/325MG, ORAL
     Route: 048

REACTIONS (1)
  - DRUG EFFECT DECREASED [None]
